FAERS Safety Report 6610906-0 (Version None)
Quarter: 2010Q1

REPORT INFORMATION
  Report Type: 
  Country: None (occurrence: None)
  Receive Date: 20100219
  Receipt Date: 20100212
  Transmission Date: 20100710
  Serious: Yes (Other)
  Sender: FDA-Public Use
  Company Number: 2010JP000891

PATIENT
  Age: 88 Year
  Sex: Female

DRUGS (5)
  1. VESICARE [Suspect]
     Indication: POLLAKIURIA
     Dosage: 5 MG, ORAL
     Route: 048
     Dates: start: 20100109
  2. RISPERDAL (RISPERIDONE) FORMULATION UNKNOWN [Concomitant]
  3. RESLIN (TRAZODONE HYDROCHLORIDE) FORMULATION UNKNOWN [Concomitant]
  4. NEURELARK (TIAPRIDE HYDROCHLORIDE) FORMULATION UNKNOWN [Concomitant]
  5. ARICEPT (DONEPEZIL HYDROCHLORIDE) FORMULATION UNKNOWN [Concomitant]

REACTIONS (3)
  - BLOOD ALBUMIN DECREASED [None]
  - PROTEIN URINE PRESENT [None]
  - RENAL FUNCTION TEST ABNORMAL [None]
